FAERS Safety Report 4386491-3 (Version None)
Quarter: 2004Q2

REPORT INFORMATION
  Report Type: 
  Country: None (occurrence: None)
  Receive Date: 20040623
  Receipt Date: 20040614
  Transmission Date: 20050107
  Serious: Yes (Other)
  Sender: FDA-Public Use
  Company Number: US-JNJFOC-20040603648

PATIENT
  Age: 77 Year
  Sex: Female
  Weight: 68.4932 kg

DRUGS (5)
  1. REMICADE [Suspect]
     Indication: RHEUMATOID ARTHRITIS
     Dosage: 300 MG, INTRAVENOUS
     Route: 042
     Dates: start: 20011101, end: 20040226
  2. METHOTREXATE SODIUM [Concomitant]
  3. BEXTRA [Concomitant]
  4. PREDNISONE TAB [Concomitant]
  5. FOLIC ACID [Concomitant]

REACTIONS (1)
  - LYMPHOMA [None]
